FAERS Safety Report 9982531 (Version 1)
Quarter: 2014Q1

REPORT INFORMATION
  Report Type: Spontaneous
  Country: US (occurrence: None)
  Receive Date: 20140306
  Receipt Date: 20140306
  Transmission Date: 20141002
  Serious: No
  Sender: FDA-Public Use
  Company Number: None

PATIENT
  Age: 66 Year
  Sex: Female

DRUGS (1)
  1. HUMIRA [Suspect]
     Indication: ILL-DEFINED DISORDER
     Dosage: HUMIRA 40 MG EVERY 2 WEEKS SUB Q
     Route: 058
     Dates: start: 20130606

REACTIONS (3)
  - Pyoderma gangrenosum [None]
  - Wound [None]
  - Wound [None]
